FAERS Safety Report 21126839 (Version 1)
Quarter: 2022Q3

REPORT INFORMATION
  Report Type: Spontaneous
  Country: ES (occurrence: ES)
  Receive Date: 20220725
  Receipt Date: 20220725
  Transmission Date: 20221026
  Serious: Yes (Hospitalization)
  Sender: FDA-Public Use
  Company Number: None

PATIENT
  Age: 90 Year
  Sex: Male

DRUGS (8)
  1. FENTANYL [Suspect]
     Active Substance: FENTANYL
     Indication: Prostate cancer
     Dosage: 1.0 PATCH /72 HOURS
     Route: 065
     Dates: start: 20210511, end: 20210514
  2. NEOMYX [Concomitant]
     Indication: Urinary incontinence
     Dosage: 1.0 CAPS DE
     Route: 048
     Dates: start: 20210327
  3. CHOLECALCIFEROL [Concomitant]
     Active Substance: CHOLECALCIFEROL
     Indication: Anaemia
     Dosage: 50000.0 UI/15 DAYS
     Route: 048
     Dates: start: 20181220
  4. ACETAMINOPHEN [Concomitant]
     Active Substance: ACETAMINOPHEN
     Indication: Urinary incontinence
     Dosage: 1.0 G C/24 H
     Route: 048
     Dates: start: 20181206
  5. FERPLEX [Concomitant]
     Indication: Anaemia
     Dosage: 800.0 MG A-DECE
     Route: 048
     Dates: start: 20181219
  6. OMEPRAZOLE [Concomitant]
     Active Substance: OMEPRAZOLE
     Indication: Dyspepsia
     Dosage: 20.0 MG C/12 H
     Route: 048
     Dates: start: 20170318
  7. ALPRAZOLAM 0.25MG - TABLET [Concomitant]
     Indication: Anxiety
     Dosage: 0.25 MG C/12 H
     Route: 048
     Dates: start: 20170318
  8. FOSTER [Concomitant]
     Active Substance: BECLOMETHASONE\FORMOTEROL
     Indication: Bronchitis chronic
     Dosage: 2.0 PUFF C/12 H
     Dates: start: 20210305

REACTIONS (2)
  - Delirium [Recovered/Resolved]
  - Off label use [Unknown]

NARRATIVE: CASE EVENT DATE: 20210514
